FAERS Safety Report 15807116 (Version 1)
Quarter: 2019Q1

REPORT INFORMATION
  Report Type: Report from Study
  Country: JP (occurrence: JP)
  Receive Date: 20190110
  Receipt Date: 20190110
  Transmission Date: 20190417
  Serious: Yes (Other)
  Sender: FDA-Public Use
  Company Number: JP-MYLANLABS-2019M1001251

PATIENT
  Sex: Female

DRUGS (2)
  1. CISPLATIN. [Suspect]
     Active Substance: CISPLATIN
     Indication: CERVIX CARCINOMA
     Dosage: ON DAY 1 OF EACH CYCLE EVERY 21 DAYS; 3 CYCLES WERE ADMINISTERED
     Route: 065
  2. FLUOROURACIL. [Suspect]
     Active Substance: FLUOROURACIL
     Indication: CERVIX CARCINOMA
     Dosage: ON DAY 1 OF EACH CYCLE ADMINISTERED AS CONTINUOUS INFUSION OVER A PERIOD OF 96 HOURS EVERY 21 DAY...
     Route: 050

REACTIONS (1)
  - Bladder perforation [Unknown]
